FAERS Safety Report 5147156-3 (Version None)
Quarter: 2006Q4

REPORT INFORMATION
  Report Type: 
  Country: None (occurrence: None)
  Receive Date: 20061103
  Receipt Date: 20061023
  Transmission Date: 20070319
  Serious: Yes (Hospitalization)
  Sender: FDA-Public Use
  Company Number: HQWYE538525OCT06

PATIENT
  Age: 25 Year
  Sex: Male

DRUGS (2)
  1. EFFEXOR [Suspect]
     Dosage: DOSE AND FREQUENCY UNSPECIFIED
  2. HALOPERIDOL [Suspect]
     Indication: AGITATION
     Dosage: DOSE AND FREQUENCY UNSPECIFIED

REACTIONS (10)
  - AGITATION POSTOPERATIVE [None]
  - COMPARTMENT SYNDROME [None]
  - CONDITION AGGRAVATED [None]
  - DRUG ABUSER [None]
  - MUSCLE CONTRACTIONS INVOLUNTARY [None]
  - NEUROLEPTIC MALIGNANT SYNDROME [None]
  - PERONEAL NERVE PALSY [None]
  - POST PROCEDURAL COMPLICATION [None]
  - SOMNOLENCE [None]
  - THERAPY NON-RESPONDER [None]
